FAERS Safety Report 4574461-1 (Version None)
Quarter: 2005Q1

REPORT INFORMATION
  Report Type: 
  Country: None (occurrence: None)
  Receive Date: 20050204
  Receipt Date: 20050127
  Transmission Date: 20050727
  Serious: Yes (Hospitalization)
  Sender: FDA-Public Use
  Company Number: 2005020951

PATIENT
  Age: 60 Year
  Sex: Female

DRUGS (2)
  1. DETROL LA [Suspect]
     Indication: HYPERTONIC BLADDER
     Dosage: 4 MG, ORAL
     Route: 048
     Dates: start: 20030101
  2. COUMADIN [Concomitant]

REACTIONS (6)
  - ARTERIAL REPAIR [None]
  - BACK PAIN [None]
  - ILL-DEFINED DISORDER [None]
  - MEDICATION ERROR [None]
  - POLLAKIURIA [None]
  - TREATMENT NONCOMPLIANCE [None]
